FAERS Safety Report 9117672 (Version 1)
Quarter: 2013Q1

REPORT INFORMATION
  Report Type: Spontaneous
  Country: US (occurrence: US)
  Receive Date: 20130208
  Receipt Date: 20130208
  Transmission Date: 20140127
  Serious: No
  Sender: FDA-Public Use
  Company Number: US-PFIZER INC-2013048732

PATIENT
  Age: 48 Year
  Sex: Female

DRUGS (10)
  1. TYGACIL [Suspect]
     Indication: KLEBSIELLA INFECTION
     Dosage: 50 MG, EVERY 12 HOURS
     Dates: start: 20121127
  2. ZOLOFT [Concomitant]
     Dosage: 15 MG, DAILY
  3. PERCOCET [Concomitant]
     Dosage: 5/3.25 MG, AS NEEDED
  4. COMPAZINE [Concomitant]
     Dosage: 10 MG, EVERY SIX HOURS
  5. ZOFRAN [Concomitant]
     Dosage: 4 MG, EVERY SIX HOURS
  6. PROTONIX [Concomitant]
     Dosage: 40 MG, DAILY
  7. ARANESP [Concomitant]
     Dosage: 150 UG, WEEKLY
  8. CLONIDINE [Concomitant]
     Dosage: 0.1 UNIT UNKNOWN, 3X/DAY
  9. LISINOPRIL [Concomitant]
     Dosage: 40 MG, DAILY
  10. LOPRESSOR [Concomitant]
     Dosage: 100 MG, 2X/DAY

REACTIONS (1)
  - Hypoglycaemia [Not Recovered/Not Resolved]
